FAERS Safety Report 4346444-8 (Version None)
Quarter: 2004Q1

REPORT INFORMATION
  Report Type: 
  Country: None (occurrence: None)
  Receive Date: 20040325
  Receipt Date: 20031229
  Transmission Date: 20041129
  Serious: No
  Sender: FDA-Public Use
  Company Number: USA031255259

PATIENT
  Age: 81 Year
  Sex: Female
  Weight: 44 kg

DRUGS (11)
  1. FORTEO [Suspect]
     Indication: OSTEOPOROSIS
     Dosage: 20 UG/DAY
     Dates: start: 20030401
  2. PAXIL [Concomitant]
  3. SINEMET [Concomitant]
  4. INDERAL [Concomitant]
  5. NEXIUM [Concomitant]
  6. REMINYL [Concomitant]
  7. PAXIL [Concomitant]
  8. VIOXX [Concomitant]
  9. CALCIUM [Concomitant]
  10. DOCUSATE [Concomitant]
  11. DURAGESIC [Concomitant]

REACTIONS (2)
  - ESSENTIAL TREMOR [None]
  - HYPERTENSION [None]
